FAERS Safety Report 22303812 (Version 5)
Quarter: 2025Q2

REPORT INFORMATION
  Report Type: Spontaneous
  Country: US (occurrence: US)
  Receive Date: 20230510
  Receipt Date: 20250417
  Transmission Date: 20250716
  Serious: Yes (Death, Other)
  Sender: RANBAXY
  Company Number: US-SUN PHARMACEUTICAL INDUSTRIES LTD-2023R1-387450

PATIENT
  Sex: Female

DRUGS (3)
  1. CARBIDOPA AND LEVODOPA [Suspect]
     Active Substance: CARBIDOPA\LEVODOPA
     Indication: Parkinson^s disease
     Route: 065
     Dates: start: 202211
  2. TIZANIDINE [Concomitant]
     Active Substance: TIZANIDINE
     Indication: Product used for unknown indication
     Route: 065
  3. PLAVIX [Concomitant]
     Active Substance: CLOPIDOGREL BISULFATE
     Indication: Product used for unknown indication
     Route: 065

REACTIONS (9)
  - Starvation [Fatal]
  - Dysphagia [Fatal]
  - Condition aggravated [Recovering/Resolving]
  - Disease recurrence [Unknown]
  - Drug ineffective [Unknown]
  - Therapy cessation [Unknown]
  - Product physical consistency issue [Unknown]
  - Muscle rigidity [Unknown]
  - Muscle spasticity [Unknown]
